FAERS Safety Report 5145888-4 (Version None)
Quarter: 2006Q4

REPORT INFORMATION
  Report Type: 
  Country: None (occurrence: None)
  Receive Date: 20061106
  Receipt Date: 20061106
  Transmission Date: 20070319
  Serious: Yes (Hospitalization)
  Sender: FDA-Public Use
  Company Number: None

PATIENT
  Sex: Female
  Weight: 82 kg

DRUGS (2)
  1. CISPLATIN [Suspect]
     Dosage: 95 MG
  2. TAXOL [Suspect]
     Dosage: 255 MG

REACTIONS (4)
  - CARDIAC FAILURE [None]
  - DEHYDRATION [None]
  - RENAL FAILURE [None]
  - VENA CAVA INJURY [None]
